FAERS Safety Report 17250924 (Version 2)
Quarter: 2020Q1

REPORT INFORMATION
  Report Type: Report from Study
  Country: US (occurrence: US)
  Receive Date: 20200109
  Receipt Date: 20200117
  Transmission Date: 20200409
  Serious: Yes (Hospitalization)
  Sender: FDA-Public Use
  Company Number: NVSC2020US003163

PATIENT
  Sex: Female

DRUGS (2)
  1. PIQRAY [Suspect]
     Active Substance: ALPELISIB
     Indication: PRODUCT USED FOR UNKNOWN INDICATION
     Dosage: UNK
     Route: 048
  2. PIQRAY [Suspect]
     Active Substance: ALPELISIB
     Dosage: 150 MG
     Route: 048

REACTIONS (7)
  - Diarrhoea [Unknown]
  - Swelling [Unknown]
  - Pyrexia [Unknown]
  - Dehydration [Unknown]
  - Rash macular [Unknown]
  - Influenza [Unknown]
  - Asthenia [Unknown]
